FAERS Safety Report 4705659-7 (Version None)
Quarter: 2005Q2

REPORT INFORMATION
  Report Type: 
  Country: None (occurrence: None)
  Receive Date: 20050629
  Receipt Date: 20050617
  Transmission Date: 20051028
  Serious: Yes (Hospitalization)
  Sender: FDA-Public Use
  Company Number: 2005AL002328

PATIENT
  Age: 67 Year
  Sex: Female

DRUGS (9)
  1. SERAX [Suspect]
     Dosage: PO
     Route: 048
     Dates: end: 20050417
  2. PIROXICAM [Suspect]
     Dosage: 20 MG;QD;PO
     Route: 048
     Dates: start: 20050115, end: 20050417
  3. HEXAQUINE [Suspect]
     Dosage: PO
     Route: 048
  4. ENALAPRIL MALEATE [Suspect]
     Dosage: 20 MG; QD; PO
     Route: 048
     Dates: end: 20050417
  5. ZOLOFT [Suspect]
     Dosage: 50 MG; QD; PO
     Route: 048
     Dates: end: 20050417
  6. EFFERALGAN (INFANTS' APAP DROPS (ACETAMINOPHEN) (ALPHARMA) [Suspect]
     Dosage: 3 GM; QD; PO
     Route: 048
     Dates: end: 20050417
  7. DAFLON [Concomitant]
  8. LEVOTHYROX [Concomitant]
  9. CARTEOL [Concomitant]

REACTIONS (3)
  - ANOREXIA [None]
  - CACHEXIA [None]
  - CYTOLYTIC HEPATITIS [None]
